FAERS Safety Report 17435224 (Version 1)
Quarter: 2020Q1

REPORT INFORMATION
  Report Type: Spontaneous
  Country: US (occurrence: US)
  Receive Date: 20200219
  Receipt Date: 20200219
  Transmission Date: 20200409
  Serious: Yes (Death)
  Sender: FDA-Public Use
  Company Number: US-PFIZER INC-2020059413

PATIENT
  Sex: Female

DRUGS (6)
  1. KETOROLAC [Concomitant]
     Active Substance: KETOROLAC TROMETHAMINE
     Dosage: UNK
     Route: 042
     Dates: start: 20010212
  2. MEPERIDINE [Concomitant]
     Active Substance: MEPERIDINE
     Dosage: UNK (I.V. PUSH)
     Route: 042
     Dates: start: 20010212
  3. PROMETHAZINE [Concomitant]
     Active Substance: PROMETHAZINE HYDROCHLORIDE
     Dosage: UNK (I.V. PUSH)
     Route: 042
  4. PROMETHAZINE [Concomitant]
     Active Substance: PROMETHAZINE HYDROCHLORIDE
     Dosage: UNK
     Dates: start: 20010212
  5. SODIUM CHLORIDE. [Concomitant]
     Active Substance: SODIUM CHLORIDE
     Indication: DEHYDRATION
     Dosage: UNK
     Route: 042
     Dates: start: 20010212
  6. POTASSIUM CHLORIDE. [Suspect]
     Active Substance: POTASSIUM CHLORIDE
     Dosage: 40 MEQ, UNK (40 MEQ OF KCL IN 1000 UNITS OF SALINE AT THE RATE OF 150 CC/HR)
     Route: 042
     Dates: start: 20010212

REACTIONS (2)
  - Arrhythmia [Fatal]
  - Product administration error [Fatal]

NARRATIVE: CASE EVENT DATE: 20010212
